FAERS Safety Report 23245462 (Version 1)
Quarter: 2023Q4

REPORT INFORMATION
  Report Type: Spontaneous
  Country: US (occurrence: US)
  Receive Date: 20231130
  Receipt Date: 20231130
  Transmission Date: 20240110
  Serious: No
  Sender: FDA-Public Use
  Company Number: US-ALVOGEN-2023092246

PATIENT
  Sex: Female

DRUGS (2)
  1. TERIPARATIDE [Suspect]
     Active Substance: TERIPARATIDE
     Indication: Product used for unknown indication
     Dosage: EXPIRATION DATE: MAR-2024.?FOR OVER A YEAR
     Dates: start: 202305
  2. TERIPARATIDE [Suspect]
     Active Substance: TERIPARATIDE
     Indication: Product used for unknown indication
     Dosage: HAS BEEN USING THIS PEN OVER A YEAR

REACTIONS (3)
  - Device malfunction [Unknown]
  - Device physical property issue [Unknown]
  - Device operational issue [Unknown]
